FAERS Safety Report 18908103 (Version 7)
Quarter: 2022Q1

REPORT INFORMATION
  Report Type: Spontaneous
  Country: US (occurrence: US)
  Receive Date: 20210218
  Receipt Date: 20220120
  Transmission Date: 20220423
  Serious: Yes (Other)
  Sender: FDA-Public Use
  Company Number: US-JNJFOC-20210228619

PATIENT
  Age: 48 Year
  Sex: Male

DRUGS (2)
  1. RISPERDAL [Suspect]
     Active Substance: RISPERIDONE
     Indication: Product used for unknown indication
     Dosage: 2 AND 5 MG
     Route: 048
     Dates: start: 2005, end: 20061101
  2. RISPERDAL [Suspect]
     Active Substance: RISPERIDONE
     Route: 048
     Dates: end: 2007

REACTIONS (3)
  - Gynaecomastia [Not Recovered/Not Resolved]
  - Stress [Not Recovered/Not Resolved]
  - Galactorrhoea [Recovered/Resolved]

NARRATIVE: CASE EVENT DATE: 20050620
